FAERS Safety Report 25036565 (Version 2)
Quarter: 2025Q1

REPORT INFORMATION
  Report Type: Spontaneous
  Country: PL (occurrence: PL)
  Receive Date: 20250304
  Receipt Date: 20250324
  Transmission Date: 20250408
  Serious: Yes (Other)
  Sender: BAYER HEALTHCARE PHARMACEUTICALS INC.
  Company Number: PL-BAYER-2025A026948

PATIENT
  Age: 73 Year
  Sex: Female

DRUGS (11)
  1. NEXAVAR [Suspect]
     Active Substance: SORAFENIB
     Indication: Thyroid cancer
  2. LEVOTHYROXINE [Concomitant]
     Active Substance: LEVOTHYROXINE
  3. METFORMIN [Concomitant]
     Active Substance: METFORMIN HYDROCHLORIDE
  4. GLIMEPIRIDE [Concomitant]
     Active Substance: GLIMEPIRIDE
  5. INDAPAMIDE [Concomitant]
     Active Substance: INDAPAMIDE
  6. ALFACALCIDOL [Concomitant]
     Active Substance: ALFACALCIDOL
  7. CLOBETASOL [Concomitant]
     Active Substance: CLOBETASOL
  8. LOSARTAN [Concomitant]
     Active Substance: LOSARTAN
  9. RAMIPRIL [Concomitant]
     Active Substance: RAMIPRIL
  10. ONDANSETRON [Concomitant]
     Active Substance: ONDANSETRON
  11. LOPERAMIDE [Concomitant]
     Active Substance: LOPERAMIDE

REACTIONS (8)
  - Thyroid cancer [Not Recovered/Not Resolved]
  - Metastases to lung [Not Recovered/Not Resolved]
  - Dry skin [None]
  - Skin fissures [None]
  - Oral mucosa erosion [None]
  - Asthenia [None]
  - Decreased appetite [None]
  - Blood triglycerides decreased [Recovering/Resolving]
